FAERS Safety Report 4363992-5 (Version None)
Quarter: 2004Q2

REPORT INFORMATION
  Report Type: 
  Country: None (occurrence: None)
  Receive Date: 20040520
  Receipt Date: 20040520
  Transmission Date: 20050107
  Serious: Yes (Other)
  Sender: FDA-Public Use
  Company Number: None

PATIENT
  Age: 7 Year
  Sex: Male
  Weight: 21.7 kg

DRUGS (2)
  1. RHINOCORT [Suspect]
     Indication: OBSTRUCTIVE AIRWAYS DISORDER
     Dosage: 1 PUFF DAY NASAL
     Route: 045
     Dates: start: 20040504, end: 20040519
  2. PLACEBO [Suspect]

REACTIONS (1)
  - HEADACHE [None]
